FAERS Safety Report 7534128-4 (Version None)
Quarter: 2011Q2

REPORT INFORMATION
  Report Type: 
  Country: None (occurrence: None)
  Receive Date: 20110608
  Receipt Date: 20061016
  Transmission Date: 20111010
  Serious: Yes (Death, Hospitalization)
  Sender: FDA-Public Use
  Company Number: PHEH2006US08114

PATIENT
  Sex: Male

DRUGS (5)
  1. EXJADE [Suspect]
     Indication: MYELODYSPLASTIC SYNDROME
     Dosage: 1000 MG, QD
     Route: 048
     Dates: start: 20060427, end: 20060615
  2. PROTON PUMP INHIBITORS [Concomitant]
     Indication: ABDOMINAL PAIN UPPER
     Dosage: UNK
  3. CRESTOR [Concomitant]
     Dosage: UNK
  4. REVLIMID [Concomitant]
     Dosage: UNK
  5. VIDAZA [Concomitant]
     Indication: PANCYTOPENIA
     Dosage: 100 MG, QD
     Route: 058
     Dates: start: 20060601

REACTIONS (14)
  - MYELODYSPLASTIC SYNDROME [None]
  - GASTROINTESTINAL HAEMORRHAGE [None]
  - ABDOMINAL PAIN UPPER [None]
  - PLEURAL EFFUSION [None]
  - HYPERTENSION [None]
  - ABDOMINAL TENDERNESS [None]
  - PYREXIA [None]
  - GASTRITIS [None]
  - HYPERLIPIDAEMIA [None]
  - ALTERED STATE OF CONSCIOUSNESS [None]
  - ABDOMINAL PAIN [None]
  - FAECES DISCOLOURED [None]
  - CHOLELITHIASIS [None]
  - PANCYTOPENIA [None]
